FAERS Safety Report 7324820-9 (Version None)
Quarter: 2011Q1

REPORT INFORMATION
  Report Type: 
  Country: None (occurrence: None)
  Receive Date: 20110301
  Receipt Date: 20110218
  Transmission Date: 20110831
  Serious: Yes (Death, Hospitalization, Other)
  Sender: FDA-Public Use
  Company Number: US-BAXTER-2011BH004075

PATIENT
  Age: 78 Year
  Sex: Female

DRUGS (1)
  1. DIANEAL [Suspect]
     Indication: PERITONEAL DIALYSIS
     Dates: start: 20101119, end: 20110122

REACTIONS (2)
  - BLOOD ALBUMIN DECREASED [None]
  - CEREBROVASCULAR ACCIDENT [None]
